FAERS Safety Report 16720315 (Version 3)
Quarter: 2020Q4

REPORT INFORMATION
  Report Type: Spontaneous
  Country: DE (occurrence: DE)
  Receive Date: 20190820
  Receipt Date: 20201105
  Transmission Date: 20210113
  Serious: Yes (Other)
  Sender: FDA-Public Use
  Company Number: DE-BAUSCH-BL-2019-022865

PATIENT
  Sex: Female
  Weight: 72 kg

DRUGS (10)
  1. CORTISONE ACETATE. [Suspect]
     Active Substance: CORTISONE ACETATE
     Indication: ASTHMA
     Route: 065
  2. CROMOGLICIC ACID;REPROTEROL [Suspect]
     Active Substance: CROMOLYN SODIUM\REPROTEROL HYDROCHLORIDE
     Indication: ASTHMA
     Route: 065
  3. FORMOTEROL [Suspect]
     Active Substance: FORMOTEROL
     Route: 065
  4. PREDNISOLON [Suspect]
     Active Substance: PREDNISOLONE
     Indication: PRODUCT USED FOR UNKNOWN INDICATION
     Dosage: 22.5 TO 15 MG
     Route: 065
  5. SALBUTAMOL [Suspect]
     Active Substance: ALBUTEROL
     Indication: ASTHMA
     Route: 065
  6. BUDESONIDE. [Suspect]
     Active Substance: BUDESONIDE
     Indication: ASTHMA
     Route: 065
  7. MONTELUKAST [Suspect]
     Active Substance: MONTELUKAST SODIUM
     Indication: ASTHMA
     Route: 065
  8. FORMOTEROL [Suspect]
     Active Substance: FORMOTEROL
     Indication: ASTHMA
     Dosage: DOSE: 2 (UNSPECIFIED UNIT), 1 OT(PUFF)
     Route: 065
  9. BUDESONIDE. [Suspect]
     Active Substance: BUDESONIDE
     Indication: PRODUCT USED FOR UNKNOWN INDICATION
     Route: 065
  10. PREDNISOLON [Suspect]
     Active Substance: PREDNISOLONE
     Indication: ASTHMA
     Route: 065

REACTIONS (4)
  - Bronchitis [Unknown]
  - Drug ineffective [Unknown]
  - Female reproductive neoplasm [Unknown]
  - Asthma [Unknown]
